FAERS Safety Report 13257614 (Version 2)
Quarter: 2018Q1

REPORT INFORMATION
  Report Type: Spontaneous
  Country: US (occurrence: US)
  Receive Date: 20170221
  Receipt Date: 20180330
  Transmission Date: 20180508
  Serious: Yes (Hospitalization, Other)
  Sender: FDA-Public Use
  Company Number: US-DEPOMED, INC.-US-2017DEP000389

PATIENT

DRUGS (4)
  1. NUCYNTA ER [Suspect]
     Active Substance: TAPENTADOL HYDROCHLORIDE
     Indication: NEURALGIA
     Dosage: 150 MG, BID
     Route: 048
  2. NUCYNTA ER [Suspect]
     Active Substance: TAPENTADOL HYDROCHLORIDE
     Indication: NEUROPATHY PERIPHERAL
     Dosage: 100 MG, BID
     Route: 048
     Dates: start: 2009
  3. NUCYNTA ER [Suspect]
     Active Substance: TAPENTADOL HYDROCHLORIDE
     Dosage: 200 MG, BID
     Route: 048
  4. NUCYNTA ER [Suspect]
     Active Substance: TAPENTADOL HYDROCHLORIDE
     Indication: MULTIPLE SCLEROSIS
     Dosage: 50 MG, BID
     Route: 048
     Dates: start: 2008

REACTIONS (21)
  - Drug withdrawal syndrome [Not Recovered/Not Resolved]
  - Blood glucose increased [Recovered/Resolved]
  - Crying [Recovered/Resolved]
  - Neuropathy peripheral [Not Recovered/Not Resolved]
  - Cerebrovascular accident [Unknown]
  - Cardiac stress test abnormal [Unknown]
  - Formication [Recovered/Resolved]
  - Burning feet syndrome [Not Recovered/Not Resolved]
  - Bradyphrenia [Not Recovered/Not Resolved]
  - Insomnia [Recovered/Resolved]
  - Product use in unapproved indication [Unknown]
  - Cardiac disorder [Unknown]
  - Coronary artery stenosis [Recovered/Resolved]
  - Neuralgia [Recovered/Resolved]
  - Pain in extremity [Not Recovered/Not Resolved]
  - Hyperhidrosis [Recovered/Resolved]
  - Drug dose titration not performed [Unknown]
  - Product distribution issue [Unknown]
  - Burning sensation [Not Recovered/Not Resolved]
  - Tremor [Not Recovered/Not Resolved]
  - Headache [Not Recovered/Not Resolved]

NARRATIVE: CASE EVENT DATE: 2008
